FAERS Safety Report 15458659 (Version 1)
Quarter: 2018Q4

REPORT INFORMATION
  Report Type: Spontaneous
  Country: US (occurrence: US)
  Receive Date: 20181003
  Receipt Date: 20181003
  Transmission Date: 20190204
  Serious: No
  Sender: FDA-Public Use
  Company Number: US-ASPEN-GLO2018US009744

PATIENT
  Age: 58 Year
  Sex: Female

DRUGS (1)
  1. BENZTROPINE MESYLATE. [Suspect]
     Active Substance: BENZTROPINE MESYLATE
     Indication: PRODUCT USED FOR UNKNOWN INDICATION
     Dosage: 0.5 MG, BID
     Route: 048
     Dates: start: 20180911

REACTIONS (4)
  - Fatigue [Unknown]
  - Hypersensitivity [Unknown]
  - Drug ineffective [Unknown]
  - Nausea [Unknown]
